FAERS Safety Report 8614001-0 (Version None)
Quarter: 2012Q3

REPORT INFORMATION
  Report Type: 
  Country: None (occurrence: None)
  Receive Date: 20120823
  Receipt Date: 20120820
  Transmission Date: 20120928
  Serious: No
  Sender: FDA-Public Use
  Company Number: US-PFIZER INC-2012152016

PATIENT
  Sex: Female

DRUGS (2)
  1. PREMARIN [Suspect]
     Dosage: UNK
  2. PREMARIN [Suspect]
     Dosage: UNK

REACTIONS (2)
  - FEELING ABNORMAL [None]
  - DRUG INEFFECTIVE [None]
